FAERS Safety Report 6771921-X (Version None)
Quarter: 2010Q2

REPORT INFORMATION
  Report Type: 
  Country: None (occurrence: None)
  Receive Date: 20100616
  Receipt Date: 20100604
  Transmission Date: 20101027
  Serious: Yes (Death)
  Sender: FDA-Public Use
  Company Number: RU-JNJFOC-20100604623

PATIENT

DRUGS (1)
  1. MEBENDAZOLE [Suspect]
     Indication: HEPATIC ECHINOCOCCIASIS
     Route: 048

REACTIONS (2)
  - DISEASE COMPLICATION [None]
  - THERAPEUTIC RESPONSE DECREASED [None]
